FAERS Safety Report 5223034-6 (Version None)
Quarter: 2007Q1

REPORT INFORMATION
  Report Type: 
  Country: None (occurrence: None)
  Receive Date: 20070129
  Receipt Date: 20070122
  Transmission Date: 20070707
  Serious: Yes (Hospitalization)
  Sender: FDA-Public Use
  Company Number: GB-PFIZER INC-2007001117

PATIENT
  Age: 79 Year
  Sex: Male
  Weight: 75 kg

DRUGS (8)
  1. LIPITOR [Suspect]
     Indication: BLOOD CHOLESTEROL INCREASED
     Route: 048
  2. LIPITOR [Suspect]
     Indication: MYOCARDIAL ISCHAEMIA
  3. NIFEDIPINE [Concomitant]
     Indication: BLOOD PRESSURE
     Route: 048
  4. TAMSULOSIN HCL [Concomitant]
     Route: 048
  5. LEVOTHYROXINE SODIUM [Concomitant]
     Indication: HYPOTHYROIDISM
     Route: 048
  6. CLOPIDOGREL [Concomitant]
     Indication: STENT PLACEMENT
     Route: 048
  7. ASPIRIN [Concomitant]
     Indication: STENT PLACEMENT
     Route: 048
  8. ATENOLOL [Concomitant]
     Indication: BLOOD PRESSURE
     Route: 048

REACTIONS (3)
  - MYALGIA [None]
  - MYOCARDIAL ISCHAEMIA [None]
  - TINNITUS [None]
